FAERS Safety Report 5275907-6 (Version None)
Quarter: 2007Q1

REPORT INFORMATION
  Report Type: 
  Country: None (occurrence: None)
  Receive Date: 20070326
  Receipt Date: 20070315
  Transmission Date: 20070707
  Serious: Yes (Hospitalization)
  Sender: FDA-Public Use
  Company Number: US-MERCK-0703USA03652

PATIENT
  Age: 11 Year
  Sex: Male
  Weight: 41 kg

DRUGS (2)
  1. HYDROCORTONE [Suspect]
     Indication: PRURITUS
     Route: 061
  2. AQUAPHOR OINTMENT [Concomitant]
     Indication: PRURITUS
     Route: 065

REACTIONS (1)
  - CUSHING'S SYNDROME [None]
